FAERS Safety Report 9534047 (Version 2)
Quarter: 2013Q3

REPORT INFORMATION
  Report Type: Spontaneous
  Country: GB (occurrence: GB)
  Receive Date: 20130918
  Receipt Date: 20130918
  Transmission Date: 20140515
  Serious: Yes (Hospitalization)
  Sender: FDA-Public Use
  Company Number: GB-UCBSA-096077

PATIENT
  Age: 53 Year
  Sex: Female
  Weight: 76.2 kg

DRUGS (3)
  1. CIMZIA [Suspect]
     Route: 058
     Dates: start: 20130808, end: 201308
  2. METHOTREXATE [Concomitant]
     Route: 048
  3. PREDNISOLONE [Concomitant]
     Route: 048

REACTIONS (14)
  - Nausea [Recovered/Resolved]
  - Headache [Unknown]
  - Dyspnoea [Recovered/Resolved]
  - Pyrexia [Recovered/Resolved]
  - Injection site vesicles [Recovered/Resolved]
  - Wheezing [Recovered/Resolved]
  - Oropharyngeal pain [Unknown]
  - Lethargy [Unknown]
  - Insomnia [Recovered/Resolved]
  - Photophobia [Recovering/Resolving]
  - Hyperhidrosis [Unknown]
  - Ear pain [Unknown]
  - Visual impairment [Unknown]
  - Lip swelling [Unknown]
